FAERS Safety Report 21178955 (Version 1)
Quarter: 2022Q3

REPORT INFORMATION
  Report Type: Spontaneous
  Country: US (occurrence: US)
  Receive Date: 20220805
  Receipt Date: 20220805
  Transmission Date: 20221027
  Serious: Yes (Other)
  Sender: FDA-Public Use
  Company Number: US-BOIRON-202200385

PATIENT
  Age: 27 Year
  Sex: Female

DRUGS (6)
  1. HOMEOPATHICS [Suspect]
     Active Substance: HOMEOPATHICS
     Indication: Stress
     Dosage: 2 TABLETS, 1X/DAY
     Route: 048
     Dates: start: 20220708
  2. HOMEOPATHICS [Suspect]
     Active Substance: HOMEOPATHICS
     Indication: Sleep disorder
  3. ZOLOFT [Concomitant]
     Active Substance: SERTRALINE HYDROCHLORIDE
  4. XANAX XR [Concomitant]
     Active Substance: ALPRAZOLAM
  5. OLLY GOODBYE STRESS [Concomitant]
  6. TOPAMAX [Concomitant]
     Active Substance: TOPIRAMATE

REACTIONS (5)
  - Psychotic disorder [Not Recovered/Not Resolved]
  - Mental status changes [Not Recovered/Not Resolved]
  - Personality change [Not Recovered/Not Resolved]
  - Depression [Not Recovered/Not Resolved]
  - Unevaluable event [Unknown]

NARRATIVE: CASE EVENT DATE: 20220701
